FAERS Safety Report 18794334 (Version 1)
Quarter: 2021Q1

REPORT INFORMATION
  Report Type: Spontaneous
  Country: US (occurrence: US)
  Receive Date: 20210127
  Receipt Date: 20210127
  Transmission Date: 20210419
  Serious: Yes (Death, Hospitalization, Disabling, Other)
  Sender: FDA-Public Use
  Company Number: US-PURDUE-USA-2020-0200541

PATIENT
  Sex: Male

DRUGS (2)
  1. DILAUDID [Suspect]
     Active Substance: HYDROMORPHONE HYDROCHLORIDE
     Indication: PRODUCT USED FOR UNKNOWN INDICATION
     Dosage: UNK
     Route: 048
  2. OXYCONTIN [Suspect]
     Active Substance: OXYCODONE HYDROCHLORIDE
     Indication: PRODUCT USED FOR UNKNOWN INDICATION
     Dosage: UNK
     Route: 048

REACTIONS (10)
  - Drug withdrawal syndrome [Unknown]
  - Depression [Unknown]
  - Anxiety [Unknown]
  - Death [Fatal]
  - Learning disability [Unknown]
  - Hospitalisation [Unknown]
  - Drug dependence [Unknown]
  - Drug abuse [Unknown]
  - Mental impairment [Unknown]
  - Disability [Unknown]

NARRATIVE: CASE EVENT DATE: 201904
